FAERS Safety Report 4317670-9 (Version None)
Quarter: 2004Q1

REPORT INFORMATION
  Report Type: 
  Country: None (occurrence: None)
  Receive Date: 20040315
  Receipt Date: 20030407
  Transmission Date: 20041129
  Serious: Yes (Disabling, Other)
  Sender: FDA-Public Use
  Company Number: WAES 0304USA00753

PATIENT
  Age: 51 Year
  Sex: Male
  Weight: 118 kg

DRUGS (9)
  1. ATENOLOL [Concomitant]
  2. ZYRTEC [Concomitant]
     Dates: start: 19950101
  3. CELEXA [Concomitant]
     Dates: start: 19990101
  4. INDOCIN [Concomitant]
     Route: 048
     Dates: start: 19820101
  5. NAPROXEN [Concomitant]
     Dates: start: 19820101
  6. PRILOSEC [Concomitant]
  7. OXYCONTIN [Concomitant]
     Dates: start: 20000101, end: 20020101
  8. ACIPHEX [Concomitant]
     Dates: start: 19990101
  9. VIOXX [Suspect]
     Indication: OSTEOARTHRITIS
     Route: 048
     Dates: start: 20000201

REACTIONS (20)
  - ACUTE MYOCARDIAL INFARCTION [None]
  - ANGINA PECTORIS [None]
  - ARTHRALGIA [None]
  - ASTHENIA [None]
  - BACK PAIN [None]
  - CORONARY ARTERY DISEASE [None]
  - DILATATION VENTRICULAR [None]
  - EJECTION FRACTION DECREASED [None]
  - FALL [None]
  - HYPOKINESIA [None]
  - ISCHAEMIA [None]
  - MUSCLE INJURY [None]
  - MUSCULAR WEAKNESS [None]
  - NECK PAIN [None]
  - PAIN [None]
  - PERIPHERAL COLDNESS [None]
  - ROAD TRAFFIC ACCIDENT [None]
  - ROTATOR CUFF SYNDROME [None]
  - SCAPULA FRACTURE [None]
  - SKIN LACERATION [None]
